FAERS Safety Report 24052461 (Version 4)
Quarter: 2024Q3

REPORT INFORMATION
  Report Type: Report from Study
  Country: US (occurrence: US)
  Receive Date: 20240705
  Receipt Date: 20240716
  Transmission Date: 20241017
  Serious: Yes (Other)
  Sender: ABBVIE
  Company Number: US-ABBVIE-5824562

PATIENT
  Sex: Female
  Weight: 79.378 kg

DRUGS (1)
  1. CREON [Suspect]
     Active Substance: PANCRELIPASE AMYLASE\PANCRELIPASE LIPASE\PANCRELIPASE PROTEASE
     Indication: Pancreatitis
     Dosage: TIME INTERVAL: 0.33333333 DAYS: FORM STRENGTH: 36000 MILLIGRAM
     Route: 048
     Dates: start: 20230101

REACTIONS (3)
  - Hiatus hernia [Recovered/Resolved]
  - Diarrhoea [Recovering/Resolving]
  - Post procedural complication [Unknown]

NARRATIVE: CASE EVENT DATE: 20230101
